FAERS Safety Report 9543080 (Version 1)
Quarter: 2013Q2

REPORT INFORMATION
  Report Type: Spontaneous
  Country: US (occurrence: None)
  Receive Date: 20130524
  Receipt Date: 20130524
  Transmission Date: 20140414
  Serious: No
  Sender: FDA-Public Use
  Company Number: PHEH2013US004446

PATIENT
  Sex: Female
  Weight: 60.3 kg

DRUGS (6)
  1. GILENYA (FINGOLIMOD) CAPSULE, 0.5 MG [Suspect]
     Dosage: 1 DF, DAILY, ORAL
     Route: 048
  2. TRI-SPRINTEC (ETHINYLESTRADIOL, NORGESTIMATE) TABLET [Concomitant]
  3. VITAMIN D (ERGOCALCIFEROL) CAPSULE [Concomitant]
  4. VIT C /06826201/ (ASCORBIC ACID, CALCIUM) CAPSULE, 500 MG [Concomitant]
  5. BIOTIN (BIOTIN) CAPSULE, 5 MG [Concomitant]
  6. VITAMIN B12 (CYANOCOBALAMIN) TABLET [Concomitant]

REACTIONS (2)
  - Musculoskeletal stiffness [None]
  - Muscle spasms [None]
